FAERS Safety Report 8976815 (Version 1)
Quarter: 2012Q4

REPORT INFORMATION
  Report Type: 
  Country: CN (occurrence: CN)
  Receive Date: 20121220
  Receipt Date: 20121220
  Transmission Date: 20130627
  Serious: Yes (Hospitalization)
  Sender: FDA-Public Use
  Company Number: CN-BAYER-2012-133606

PATIENT
  Age: 72 Year
  Sex: Male
  Weight: 113 kg

DRUGS (1)
  1. BAYASPIRIN [Suspect]
     Indication: CORONARY HEART DISEASE
     Dosage: 0.1 g, QD
     Route: 048
     Dates: start: 20100713, end: 20100726

REACTIONS (1)
  - Thrombocytopenia [Recovering/Resolving]
